FAERS Safety Report 8541503-8 (Version None)
Quarter: 2012Q3

REPORT INFORMATION
  Report Type: 
  Country: None (occurrence: None)
  Receive Date: 20120726
  Receipt Date: 20120719
  Transmission Date: 20120928
  Serious: Yes (Hospitalization, Other)
  Sender: FDA-Public Use
  Company Number: GB-JNJFOC-20120710017

PATIENT
  Sex: Female

DRUGS (2)
  1. XARELTO [Suspect]
     Indication: KNEE ARTHROPLASTY
     Route: 065
     Dates: start: 20101217, end: 20101201
  2. XARELTO [Suspect]
     Indication: THROMBOSIS PROPHYLAXIS
     Route: 065
     Dates: start: 20101217, end: 20101201

REACTIONS (19)
  - HALLUCINATION [None]
  - ALOPECIA [None]
  - OCULAR DISCOMFORT [None]
  - HYPOTENSION [None]
  - EPISTAXIS [None]
  - NIGHTMARE [None]
  - POST PROCEDURAL INFECTION [None]
  - LIVER DISORDER [None]
  - SWELLING [None]
  - GINGIVAL PAIN [None]
  - MALAISE [None]
  - DYSPNOEA [None]
  - PAIN IN EXTREMITY [None]
  - FLASHBACK [None]
  - SYNCOPE [None]
  - ASTHENIA [None]
  - DRUG HYPERSENSITIVITY [None]
  - FATIGUE [None]
  - ANAEMIA [None]
